FAERS Safety Report 4378036-9 (Version None)
Quarter: 2004Q2

REPORT INFORMATION
  Report Type: 
  Country: None (occurrence: None)
  Receive Date: 20040609
  Receipt Date: 20040527
  Transmission Date: 20050107
  Serious: Yes (Other)
  Sender: FDA-Public Use
  Company Number: 2004035729

PATIENT
  Age: 83 Year
  Sex: Female

DRUGS (3)
  1. ZOLOFT [Suspect]
     Indication: MAJOR DEPRESSION
     Dosage: 50 MG
     Dates: start: 20040521, end: 20040524
  2. CLONAZEPAM [Concomitant]
  3. DI-GESIC (DEXTROPROPOXYPHENE, PARACETAMOL) [Concomitant]

REACTIONS (4)
  - CONFUSIONAL STATE [None]
  - DELIRIUM [None]
  - HALLUCINATION [None]
  - SEROTONIN SYNDROME [None]
